FAERS Safety Report 17283322 (Version 1)
Quarter: 2020Q1

REPORT INFORMATION
  Report Type: Spontaneous
  Country: FR (occurrence: FR)
  Receive Date: 20200117
  Receipt Date: 20200117
  Transmission Date: 20200409
  Serious: Yes (Death)
  Sender: FDA-Public Use
  Company Number: FR-PFIZER INC-2020019867

PATIENT
  Age: 76 Year
  Sex: Female

DRUGS (6)
  1. DIOSMIN [Suspect]
     Active Substance: DIOSMIN
     Dosage: 600 MG, 1X/DAY
     Route: 048
     Dates: end: 20190505
  2. KARDEGIC [Suspect]
     Active Substance: ASPIRIN DL-LYSINE
     Indication: ACUTE CORONARY SYNDROME
     Dosage: 1 DF, 1X/DAY
     Route: 048
     Dates: end: 20190505
  3. FORTZAAR [Suspect]
     Active Substance: HYDROCHLOROTHIAZIDE\LOSARTAN POTASSIUM
     Indication: HYPERTENSION
     Dosage: UNK
     Route: 048
     Dates: end: 20190505
  4. RILMENIDINE [Suspect]
     Active Substance: RILMENIDINE
     Indication: HYPERTENSION
     Dosage: 2 DF, 1X/DAY
     Route: 048
     Dates: end: 20190505
  5. TAHOR [Suspect]
     Active Substance: ATORVASTATIN CALCIUM
     Indication: ACUTE CORONARY SYNDROME
     Dosage: UNK
     Route: 048
     Dates: end: 20190505
  6. HYDREA [Suspect]
     Active Substance: HYDROXYUREA
     Indication: THROMBOCYTOSIS
     Dosage: 9 DF, WEEKLY
     Route: 048
     Dates: end: 20190505

REACTIONS (4)
  - Aphasia [Fatal]
  - Cardiac arrest [Fatal]
  - Cerebral haemorrhage [Fatal]
  - Hemiplegia [Fatal]

NARRATIVE: CASE EVENT DATE: 20190505
